APPROVED DRUG PRODUCT: BENZPHETAMINE HYDROCHLORIDE
Active Ingredient: BENZPHETAMINE HYDROCHLORIDE
Strength: 50MG
Dosage Form/Route: TABLET;ORAL
Application: A090968 | Product #001 | TE Code: AA
Applicant: KVK TECH INC
Approved: Jul 20, 2010 | RLD: No | RS: Yes | Type: RX